FAERS Safety Report 11116126 (Version 1)
Quarter: 2015Q2

REPORT INFORMATION
  Report Type: Spontaneous
  Country: US (occurrence: US)
  Receive Date: 20150515
  Receipt Date: 20150515
  Transmission Date: 20150821
  Serious: No
  Sender: FDA-Public Use
  Company Number: US-CELGENEUS-USA-2015041475

PATIENT
  Sex: Female

DRUGS (1)
  1. REVLIMID [Suspect]
     Active Substance: LENALIDOMIDE
     Indication: PLASMA CELL MYELOMA
     Dosage: 10 MILLIGRAM
     Route: 048
     Dates: start: 201501

REACTIONS (10)
  - Dry mouth [Unknown]
  - Oropharyngeal pain [Unknown]
  - Gingival bleeding [Unknown]
  - Food intolerance [Unknown]
  - Fatigue [Unknown]
  - Balance disorder [Unknown]
  - Rash [Unknown]
  - Cough [Unknown]
  - Genital pain [Unknown]
  - Tremor [Unknown]

NARRATIVE: CASE EVENT DATE: 2015
